FAERS Safety Report 18353349 (Version 1)
Quarter: 2020Q4

REPORT INFORMATION
  Report Type: Spontaneous
  Country: US (occurrence: US)
  Receive Date: 20201007
  Receipt Date: 20201007
  Transmission Date: 20210114
  Serious: Yes (Other)
  Sender: FDA-Public Use
  Company Number: US-SA-2020SA272740

PATIENT

DRUGS (1)
  1. LEMTRADA [Suspect]
     Active Substance: ALEMTUZUMAB
     Route: 065

REACTIONS (4)
  - Blood thyroid stimulating hormone abnormal [Unknown]
  - Off label use [Unknown]
  - Brain injury [Unknown]
  - Memory impairment [Unknown]
